FAERS Safety Report 6720601 (Version 7)
Quarter: 2013Q3

REPORT INFORMATION
  Report Type: Spontaneous
  Country: US (occurrence: US)
  Receive Date: 20080807
  Receipt Date: 20130809
  Transmission Date: 20140515
  Serious: Yes (Other)
  Sender: FDA-Public Use
  Company Number: US-BAYER-200829320NA

PATIENT
  Age: 56 Year
  Sex: Male
  Weight: 81 kg

DRUGS (21)
  1. MAGNEVIST [Suspect]
     Indication: ARTERIOGRAM CORONARY
  2. OMNISCAN [Suspect]
     Indication: ARTERIOGRAM CORONARY
  3. OPTIMARK [Suspect]
     Indication: ARTERIOGRAM CORONARY
  4. MULTIHANCE [GADOBENIC ACID MEGLUMINE] [Suspect]
     Indication: ARTERIOGRAM CORONARY
  5. PROHANCE [GADOTERIDOL] [Suspect]
     Indication: ARTERIOGRAM CORONARY
  6. MAGNEVIST [Suspect]
     Dates: start: 20030830, end: 20030830
  7. CELLCEPT [Concomitant]
  8. NEORAL [Concomitant]
  9. ALPRAZOLAM [Concomitant]
  10. ASA [Concomitant]
  11. HYTRIN [Concomitant]
  12. CELEBREX [Concomitant]
  13. DIOVAN [Concomitant]
  14. AMBIEN [Concomitant]
  15. BENADRYL [Concomitant]
  16. MVI [Concomitant]
  17. CYCLOSPORINE [Concomitant]
  18. CONTRAST MEDIA [Concomitant]
     Indication: CATHETERISATION CARDIAC
     Dates: start: 20030225, end: 20030225
  19. CONTRAST MEDIA [Concomitant]
     Indication: CATHETERISATION CARDIAC
     Dates: start: 20040217, end: 20040217
  20. OPTIRAY 350 [IOVERSOL] [Concomitant]
     Dates: start: 20030225, end: 20030225
  21. OPTIRAY 350 [IOVERSOL] [Concomitant]
     Dates: start: 20040217, end: 20040217

REACTIONS (31)
  - Nephrogenic systemic fibrosis [Not Recovered/Not Resolved]
  - Rash macular [Not Recovered/Not Resolved]
  - Skin discolouration [Not Recovered/Not Resolved]
  - Skin induration [Not Recovered/Not Resolved]
  - Injury [Not Recovered/Not Resolved]
  - Pain [Not Recovered/Not Resolved]
  - Anxiety [Not Recovered/Not Resolved]
  - General physical health deterioration [Not Recovered/Not Resolved]
  - Emotional distress [Not Recovered/Not Resolved]
  - Pain of skin [Not Recovered/Not Resolved]
  - Myalgia [Not Recovered/Not Resolved]
  - Musculoskeletal stiffness [Not Recovered/Not Resolved]
  - Arthralgia [Not Recovered/Not Resolved]
  - Joint stiffness [Not Recovered/Not Resolved]
  - Skin plaque [Not Recovered/Not Resolved]
  - Mobility decreased [Not Recovered/Not Resolved]
  - Local swelling [Not Recovered/Not Resolved]
  - Myosclerosis [Not Recovered/Not Resolved]
  - Paraesthesia [Not Recovered/Not Resolved]
  - Burning sensation [Not Recovered/Not Resolved]
  - Skin tightness [Not Recovered/Not Resolved]
  - Skin lesion [Not Recovered/Not Resolved]
  - Gait disturbance [Not Recovered/Not Resolved]
  - Muscular weakness [Not Recovered/Not Resolved]
  - Osteoarthritis [Not Recovered/Not Resolved]
  - Skin mass [Not Recovered/Not Resolved]
  - Asthenia [Not Recovered/Not Resolved]
  - Loss of consciousness [Not Recovered/Not Resolved]
  - Dyskinesia [Not Recovered/Not Resolved]
  - Feeling hot [Not Recovered/Not Resolved]
  - Unevaluable event [Not Recovered/Not Resolved]
